FAERS Safety Report 8813510 (Version 4)
Quarter: 2012Q4

REPORT INFORMATION
  Report Type: 
  Country: US (occurrence: US)
  Receive Date: 20120927
  Receipt Date: 20121221
  Transmission Date: 20130627
  Serious: No
  Sender: FDA-Public Use
  Company Number: US-AMGEN-USASP2012043795

PATIENT
  Age: 81 Year
  Sex: Female
  Weight: 53.52 kg

DRUGS (21)
  1. PROLIA [Suspect]
     Indication: OSTEOPOROSIS POSTMENOPAUSAL
     Dosage: 60 mg, q6mo
     Route: 058
     Dates: start: 20120608
  2. PROLIA [Suspect]
  3. POTASSIUM [Concomitant]
     Dosage: UNK
  4. POTASSIUM [Concomitant]
     Dosage: 10 mEq, qd
  5. AMLODIPINE [Concomitant]
     Dosage: UNK
  6. AMLODIPINE [Concomitant]
     Dosage: UNK UNK, qd
  7. OMEPRAZOLE [Concomitant]
     Dosage: UNK
  8. OMEPRAZOLE [Concomitant]
     Dosage: UNK UNK, qd
  9. ASPIRIN [Concomitant]
     Dosage: 81 mg, qd
  10. ATORVASTATIN [Concomitant]
     Dosage: 40 mg, qd
  11. LASIX                              /00032601/ [Concomitant]
     Dosage: 20 mg, qd
  12. LASIX                              /00032601/ [Concomitant]
     Dosage: UNK
  13. GABAPENTIN [Concomitant]
     Dosage: 300 mg, qd
  14. OXYBUTYNIN [Concomitant]
     Dosage: 5 mg, qd
  15. LIPITOR [Concomitant]
     Dosage: UNK
  16. NORVASC [Concomitant]
     Dosage: UNK
  17. MELOXICAM [Concomitant]
  18. ATORVASTATIN CALCIUM [Concomitant]
     Dosage: UNK
  19. MELATONIN [Concomitant]
     Dosage: 3 mg, qd
  20. MULTIVITAMIN                       /00097801/ [Concomitant]
     Dosage: UNK
  21. VITAMIN D /00107901/ [Concomitant]
     Dosage: 50000 IU, qmo

REACTIONS (9)
  - Back pain [Not Recovered/Not Resolved]
  - Fatigue [Unknown]
  - Asthenia [Unknown]
  - Myalgia [Not Recovered/Not Resolved]
  - Decubitus ulcer [Not Recovered/Not Resolved]
  - Sleep disorder due to a general medical condition [Not Recovered/Not Resolved]
  - Muscle tightness [Unknown]
  - Arthritis [Unknown]
  - Pain in extremity [Not Recovered/Not Resolved]
